FAERS Safety Report 8328683-4 (Version None)
Quarter: 2012Q2

REPORT INFORMATION
  Report Type: 
  Country: None (occurrence: None)
  Receive Date: 20120502
  Receipt Date: 20100818
  Transmission Date: 20120825
  Serious: Yes (Hospitalization)
  Sender: FDA-Public Use
  Company Number: US-TEVA-2010004424

PATIENT
  Age: 23 Year
  Sex: Male

DRUGS (1)
  1. NUVIGIL [Suspect]
     Route: 048

REACTIONS (1)
  - TACHYCARDIA [None]
